FAERS Safety Report 11314034 (Version 1)
Quarter: 2015Q3

REPORT INFORMATION
  Report Type: Spontaneous
  Country: CZ (occurrence: CZ)
  Receive Date: 20150727
  Receipt Date: 20150727
  Transmission Date: 20151125
  Serious: Yes (Hospitalization, Other)
  Sender: FDA-Public Use
  Company Number: CZ-GE HEALTHCARE MEDICAL DIAGNOSTICS-VISP-E2B_00000134

PATIENT
  Age: 75 Year
  Sex: Female

DRUGS (12)
  1. VISIPAQUE [Suspect]
     Active Substance: IODIXANOL
     Indication: DIAGNOSTIC PROCEDURE
  2. ISOPHANE INSULIN [Concomitant]
     Active Substance: INSULIN NOS
  3. APO-FENO [Concomitant]
     Active Substance: FENOFIBRATE
  4. VISIPAQUE [Suspect]
     Active Substance: IODIXANOL
     Indication: PRODUCT USED FOR UNKNOWN INDICATION
     Dosage: DOSE NOT REPORTED
     Route: 065
     Dates: start: 20150625, end: 20150625
  5. DUOPLAVIN 75 MG/100 MG [Concomitant]
  6. PROTEVASC [Concomitant]
     Active Substance: TRIMETAZIDINE DIHYDROCHLORIDE
  7. FURON [Concomitant]
     Active Substance: FUROSEMIDE
  8. LYRICA [Concomitant]
     Active Substance: PREGABALIN
  9. MONOTAB SR [Concomitant]
  10. SYMBICORT [Concomitant]
     Active Substance: BUDESONIDE\FORMOTEROL FUMARATE DIHYDRATE
     Route: 055
  11. NEBILET [Concomitant]
     Active Substance: NEBIVOLOL
  12. ACTRAPID [Concomitant]
     Active Substance: INSULIN HUMAN

REACTIONS (1)
  - Drug eruption [Recovered/Resolved]

NARRATIVE: CASE EVENT DATE: 20150703
